FAERS Safety Report 25334579 (Version 1)
Quarter: 2025Q2

REPORT INFORMATION
  Report Type: Spontaneous
  Country: MK (occurrence: MK)
  Receive Date: 20250520
  Receipt Date: 20250520
  Transmission Date: 20250717
  Serious: Yes (Other)
  Sender: TEVA
  Company Number: MK-TEVA-VS-3331668

PATIENT
  Age: 50 Year
  Sex: Male

DRUGS (1)
  1. MYCOPHENOLATE MOFETIL [Suspect]
     Active Substance: MYCOPHENOLATE MOFETIL
     Indication: Immunosuppressant drug therapy
     Route: 065

REACTIONS (2)
  - Coeliac disease [Recovered/Resolved]
  - Gastrointestinal disorder [Recovered/Resolved]
